FAERS Safety Report 10445416 (Version 1)
Quarter: 2014Q3

REPORT INFORMATION
  Report Type: Spontaneous
  Country: US (occurrence: US)
  Receive Date: 20140908
  Receipt Date: 20140908
  Transmission Date: 20150326
  Serious: No
  Sender: FDA-Public Use
  Company Number: US-BRISTOL-MYERS SQUIBB COMPANY-19450592

PATIENT

DRUGS (3)
  1. ABILIFY [Suspect]
     Active Substance: ARIPIPRAZOLE
     Dosage: INITIAL DOSE IS 10MG?INCREASED FROM 2MG TO 4MG
  2. EFFEXOR [Suspect]
     Active Substance: VENLAFAXINE HYDROCHLORIDE
  3. ZOLOFT [Suspect]
     Active Substance: SERTRALINE HYDROCHLORIDE
     Dosage: 1 DF = 150 UNITS NOS?INITIAL DOSE IS 200 UNITS NOS

REACTIONS (3)
  - Agitation [Recovering/Resolving]
  - Irritability [Recovering/Resolving]
  - Discomfort [Recovering/Resolving]
